FAERS Safety Report 9796401 (Version 1)
Quarter: 2014Q1

REPORT INFORMATION
  Report Type: Spontaneous
  Country: BR (occurrence: BR)
  Receive Date: 20140103
  Receipt Date: 20140103
  Transmission Date: 20141002
  Serious: Yes (Other)
  Sender: FDA-Public Use
  Company Number: BR-BRISTOL-MYERS SQUIBB COMPANY-19970789

PATIENT
  Age: 73 Year
  Sex: Male
  Weight: 77 kg

DRUGS (10)
  1. ONGLYZA TABS 2.5 MG [Suspect]
     Indication: DIABETES MELLITUS
     Route: 048
  2. PANTOZOL [Concomitant]
  3. NORVASC [Concomitant]
  4. SELOZOK [Concomitant]
  5. PROCIMAX [Concomitant]
  6. ANCORON [Concomitant]
  7. NORIPURUM [Concomitant]
  8. LIPITOR [Concomitant]
     Indication: BLOOD CHOLESTEROL
  9. RIVOTRIL [Concomitant]
  10. ERYTHROPOIETIN [Concomitant]
     Dosage: INJECTION

REACTIONS (1)
  - Atrial fibrillation [Unknown]
